FAERS Safety Report 6943323-4 (Version None)
Quarter: 2010Q3

REPORT INFORMATION
  Report Type: 
  Country: None (occurrence: None)
  Receive Date: 20100826
  Receipt Date: 20100810
  Transmission Date: 20110219
  Serious: Yes (Death)
  Sender: FDA-Public Use
  Company Number: JP-PFIZER INC-2010106754

PATIENT
  Age: 56 Year
  Sex: Male
  Weight: 53.5 kg

DRUGS (14)
  1. SILDENAFIL CITRATE [Suspect]
     Dosage: 20 MG, 2X/DAY
     Route: 048
     Dates: start: 20080517
  2. TRACLEER [Concomitant]
     Indication: PULMONARY HYPERTENSION
     Dosage: UNK
     Dates: start: 20080322
  3. PREDONINE [Concomitant]
  4. WARFARIN [Concomitant]
  5. ASPIRIN [Concomitant]
  6. LASIX [Concomitant]
  7. SELBEX [Concomitant]
  8. ALENDRONATE SODIUM [Concomitant]
  9. ASPARA-CA [Concomitant]
  10. MAGNESIUM OXIDE [Concomitant]
  11. COTRIM [Concomitant]
  12. TAKEPRON [Concomitant]
  13. BREDININ [Concomitant]
  14. ALDACTONE [Concomitant]

REACTIONS (1)
  - DEATH [None]
